FAERS Safety Report 5229577-3 (Version None)
Quarter: 2007Q1

REPORT INFORMATION
  Report Type: 
  Country: None (occurrence: None)
  Receive Date: 20061201
  Receipt Date: 20060925
  Transmission Date: 20070707
  Serious: No
  Sender: FDA-Public Use
  Company Number: 2006PV021891

PATIENT
  Age: 58 Year
  Sex: Female

DRUGS (3)
  1. BYETTA [Suspect]
     Indication: DIABETES MELLITUS NON-INSULIN-DEPENDENT
     Dosage: 5 MCG;QD;SC
     Route: 058
     Dates: start: 20060921
  2. NOVOLIN 70/30 [Concomitant]
  3. AVANDIA [Concomitant]

REACTIONS (6)
  - DRY MOUTH [None]
  - FEELING ABNORMAL [None]
  - FORMICATION [None]
  - HEADACHE [None]
  - NAUSEA [None]
  - SALIVARY HYPERSECRETION [None]
